FAERS Safety Report 6479611-8 (Version None)
Quarter: 2009Q4

REPORT INFORMATION
  Report Type: 
  Country: None (occurrence: None)
  Receive Date: 20091207
  Receipt Date: 20091207
  Transmission Date: 20100525
  Serious: Yes (Death, Hospitalization)
  Sender: FDA-Public Use
  Company Number: None

PATIENT
  Sex: Female
  Weight: 22.4 kg

DRUGS (5)
  1. CYCLOPHOSPHAMIDE [Suspect]
     Dosage: 1680 MG
  2. CYTARABINE [Suspect]
     Dosage: 992 MG
  3. MERCAPTOPURINE [Suspect]
     Dosage: 1400 MG
  4. METHOTREXATE [Suspect]
     Dosage: 48 MG
  5. ONCASPAR [Suspect]
     Dosage: 4100 IU

REACTIONS (17)
  - ASTHENIA [None]
  - BRAIN DEATH [None]
  - BRAIN HERNIATION [None]
  - CEREBRAL FUNGAL INFECTION [None]
  - CEREBRAL HAEMATOMA [None]
  - CEREBRAL HAEMORRHAGE [None]
  - DECEREBRATION [None]
  - INTRACRANIAL PRESSURE INCREASED [None]
  - MUCORMYCOSIS [None]
  - POSTURING [None]
  - PULMONARY HAEMORRHAGE [None]
  - PULMONARY NECROSIS [None]
  - PULMONARY THROMBOSIS [None]
  - PUPIL FIXED [None]
  - RENAL FAILURE [None]
  - RESPIRATORY DISORDER [None]
  - UNRESPONSIVE TO STIMULI [None]
